FAERS Safety Report 18767156 (Version 4)
Quarter: 2021Q1

REPORT INFORMATION
  Report Type: Report from Study
  Country: FR (occurrence: FR)
  Receive Date: 20210121
  Receipt Date: 20210330
  Transmission Date: 20210419
  Serious: Yes (Disabling, Other)
  Sender: FDA-Public Use
  Company Number: FR-JNJFOC-20210118938

PATIENT
  Age: 37 Year
  Sex: Female
  Weight: 157 kg

DRUGS (12)
  1. DIAZEPAM. [Concomitant]
     Active Substance: DIAZEPAM
     Dates: start: 20171219
  2. SERTRALINE [Concomitant]
     Active Substance: SERTRALINE HYDROCHLORIDE
     Indication: DEPRESSION
     Dates: start: 20200923, end: 20201117
  3. FLUOXETINE [Concomitant]
     Active Substance: FLUOXETINE HYDROCHLORIDE
     Indication: DEPRESSION
     Dates: start: 20201117, end: 20201215
  4. INEXIUM [ESOMEPRAZOLE MAGNESIUM] [Concomitant]
     Active Substance: ESOMEPRAZOLE MAGNESIUM
     Dates: start: 20200722
  5. SPRAVATO [Suspect]
     Active Substance: ESKETAMINE
     Dates: start: 20200424
  6. RISPERDAL [Concomitant]
     Active Substance: RISPERIDONE
     Dates: start: 20200224
  7. SPRAVATO [Suspect]
     Active Substance: ESKETAMINE
     Dates: start: 20201110, end: 20201228
  8. RISPERDAL [Concomitant]
     Active Substance: RISPERIDONE
     Dates: start: 20200212, end: 20200522
  9. LAMICTAL [Concomitant]
     Active Substance: LAMOTRIGINE
     Dates: start: 20200130
  10. TERALITHE [Concomitant]
     Active Substance: LITHIUM CARBONATE
     Dates: start: 20200909
  11. SPRAVATO [Suspect]
     Active Substance: ESKETAMINE
     Dates: start: 20200422
  12. SPRAVATO [Suspect]
     Active Substance: ESKETAMINE
     Indication: DEPRESSION
     Dates: start: 20200415

REACTIONS (7)
  - Off label use [Unknown]
  - Derealisation [Recovered/Resolved]
  - Suicidal ideation [Recovered/Resolved]
  - Product use issue [Unknown]
  - Anxiety [Recovered/Resolved]
  - Feeling abnormal [Recovered/Resolved]
  - Drug ineffective [Unknown]

NARRATIVE: CASE EVENT DATE: 20200424
